FAERS Safety Report 9091080 (Version 1)
Quarter: 2013Q1

REPORT INFORMATION
  Report Type: Spontaneous
  Country: GB (occurrence: GB)
  Receive Date: 20130201
  Receipt Date: 20130201
  Transmission Date: 20140127
  Serious: Yes (Other)
  Sender: FDA-Public Use
  Company Number: GB-ALEXION PHARMACEUTICALS INC.-A201300158

PATIENT
  Sex: 0

DRUGS (2)
  1. SOLIRIS 300MG [Suspect]
     Indication: PAROXYSMAL NOCTURNAL HAEMOGLOBINURIA
     Route: 042
  2. WARFARIN [Concomitant]
     Indication: THROMBOSIS

REACTIONS (4)
  - Transient ischaemic attack [Unknown]
  - Lacunar infarction [Unknown]
  - Diabetes mellitus [Unknown]
  - Diabetic microangiopathy [Unknown]
